FAERS Safety Report 7903992-9 (Version None)
Quarter: 2011Q4

REPORT INFORMATION
  Report Type: 
  Country: None (occurrence: None)
  Receive Date: 20111109
  Receipt Date: 20111101
  Transmission Date: 20120403
  Serious: Yes (Other)
  Sender: FDA-Public Use
  Company Number: US-UCBSA-044863

PATIENT
  Age: 24 Hour

DRUGS (36)
  1. CIPROFLOXACIN [Concomitant]
     Indication: CROHN'S DISEASE
     Route: 064
     Dates: start: 20100706
  2. PREDNISONE [Concomitant]
     Dosage: DAILY DOSE: 20 MG
     Route: 064
     Dates: start: 20110526, end: 20110608
  3. PREDNISONE [Concomitant]
     Dosage: DAILY DOSE: 60 MG
     Route: 064
     Dates: start: 20110331, end: 20110413
  4. KEFLEX [Concomitant]
     Dosage: 500 MG
     Route: 064
     Dates: start: 20110614, end: 20110621
  5. PRILOSEC [Concomitant]
     Indication: DYSPEPSIA
     Route: 064
     Dates: start: 20110412
  6. PANTOPRAZOLE [Concomitant]
     Route: 064
  7. ORAL STEROIDS [Concomitant]
     Route: 064
  8. PREDNISONE [Concomitant]
     Route: 064
     Dates: start: 20110601, end: 20110601
  9. PREDNISONE [Concomitant]
     Dosage: DAILY DOSE: 10 MG
     Route: 064
     Dates: start: 20110609
  10. KEFLEX [Concomitant]
     Indication: CROHN'S DISEASE
     Route: 064
     Dates: start: 20110811, end: 20110823
  11. KEFLEX [Concomitant]
     Dosage: 500 MG
     Route: 064
     Dates: start: 20110614, end: 20110621
  12. ACYCLOVIR [Concomitant]
     Indication: CROHN'S DISEASE
     Route: 064
     Dates: start: 20110513, end: 20110628
  13. CIMZIA [Suspect]
     Indication: CROHN'S DISEASE
     Route: 064
     Dates: start: 20101201, end: 20110820
  14. AUGMENTIN '125' [Concomitant]
     Indication: CROHN'S DISEASE
     Route: 064
     Dates: start: 20110603, end: 20110613
  15. PERIDEX [Concomitant]
     Dosage: 3 TIMES DAILY
     Route: 064
  16. ACTOS [Concomitant]
     Indication: GESTATIONAL DIABETES
     Dosage: 15 MG DAILY
     Route: 064
  17. PREDNISONE [Concomitant]
     Dosage: 60 MG
     Route: 064
     Dates: end: 20110601
  18. PREDNISONE [Concomitant]
     Dosage: DAILY DOSE: 25 MG
     Route: 064
     Dates: start: 20110512, end: 20110525
  19. DIPHENOXYLATE HCL + ATROPINE SULFATE [Concomitant]
     Route: 064
  20. ASACOL [Concomitant]
     Route: 064
  21. IMODIUM [Concomitant]
     Route: 064
  22. NYSTATIN [Concomitant]
     Dosage: FOUR TIMES DAILY
     Route: 064
  23. UNASYN [Concomitant]
     Indication: INFECTION
     Route: 064
     Dates: start: 20110814, end: 20110823
  24. PREDNISONE [Concomitant]
     Indication: CROHN'S DISEASE
     Dosage: DAILY DOSE: 60 MG
     Route: 064
     Dates: start: 20110601
  25. PREDNISONE [Concomitant]
     Dosage: DAILY DOSE: 40 MG
     Route: 064
     Dates: start: 20110428, end: 20110511
  26. PHENERGAN [Concomitant]
     Indication: NAUSEA
     Dosage: 25 MG TWICE A DAY
     Route: 064
     Dates: start: 20110412
  27. IV STEROIDS [Concomitant]
     Route: 064
  28. ASACOL [Concomitant]
     Indication: CROHN'S DISEASE
     Route: 064
     Dates: start: 19991105
  29. KEFLEX [Concomitant]
     Indication: URINARY TRACT INFECTION
     Route: 064
     Dates: start: 20110811, end: 20110823
  30. PREDNISONE [Concomitant]
     Dosage: DAILY DOSE: 50 MG
     Route: 064
     Dates: start: 20110414, end: 20110427
  31. PREDNISONE [Concomitant]
     Route: 064
  32. MACROBID [Concomitant]
     Indication: CROHN'S DISEASE
     Route: 064
     Dates: start: 20110603, end: 20110820
  33. OXYCODONE HCL [Concomitant]
     Indication: PAIN
     Dosage: ONE TABLET EVERY FOUR TO SIX HOURS
     Route: 064
  34. MULTI-VITAMINS [Concomitant]
     Route: 064
  35. SOLU-MEDROL [Concomitant]
     Route: 064
  36. VANCOMYCIN [Concomitant]
     Dosage: FOR TWO DAYS
     Route: 064

REACTIONS (2)
  - FOETAL EXPOSURE DURING PREGNANCY [None]
  - PREMATURE BABY [None]
